FAERS Safety Report 4765485-X (Version None)
Quarter: 2005Q3

REPORT INFORMATION
  Report Type: 
  Country: None (occurrence: None)
  Receive Date: 20050908
  Receipt Date: 20050908
  Transmission Date: 20060218
  Serious: Yes (Hospitalization)
  Sender: FDA-Public Use
  Company Number: None

PATIENT
  Age: 46 Year
  Sex: Male
  Weight: 101.2 kg

DRUGS (1)
  1. HYDROCHLOROTHIAZIDE [Suspect]

REACTIONS (2)
  - RASH GENERALISED [None]
  - RASH MACULO-PAPULAR [None]
